FAERS Safety Report 4813227-1 (Version None)
Quarter: 2005Q4

REPORT INFORMATION
  Report Type: 
  Country: None (occurrence: None)
  Receive Date: 20051028
  Receipt Date: 20050413
  Transmission Date: 20060501
  Serious: No
  Sender: FDA-Public Use
  Company Number: US-GLAXOSMITHKLINE-A0554035A

PATIENT
  Age: 50 Year
  Sex: Female

DRUGS (8)
  1. ADVAIR DISKUS 100/50 [Suspect]
     Indication: ASTHMA
     Dosage: 1PUFF TWICE PER DAY
     Route: 055
     Dates: start: 20050411
  2. ALBUTEROL [Concomitant]
  3. PRAVACHOL [Concomitant]
  4. PREVACID [Concomitant]
  5. CALCIUM GLUCONATE [Concomitant]
  6. B-12 VITAMIN [Concomitant]
  7. ASPIRIN [Concomitant]
  8. ADVIL [Concomitant]

REACTIONS (3)
  - DYSGEUSIA [None]
  - PHARMACEUTICAL PRODUCT COMPLAINT [None]
  - THROAT IRRITATION [None]
